FAERS Safety Report 9632148 (Version 1)
Quarter: 2013Q4

REPORT INFORMATION
  Report Type: Spontaneous
  Country: US (occurrence: US)
  Receive Date: 20131018
  Receipt Date: 20131018
  Transmission Date: 20140711
  Serious: No
  Sender: FDA-Public Use
  Company Number: 2013SP003002

PATIENT
  Sex: Female

DRUGS (3)
  1. LATUDA [Suspect]
     Indication: BIPOLAR I DISORDER
     Route: 048
  2. LATUDA [Suspect]
     Indication: BIPOLAR I DISORDER
     Route: 048
  3. CYMBALTA [Concomitant]
     Indication: PRODUCT USED FOR UNKNOWN INDICATION

REACTIONS (2)
  - Stomatitis [Recovered/Resolved]
  - Rash [Recovered/Resolved]
